FAERS Safety Report 12346139 (Version 4)
Quarter: 2017Q1

REPORT INFORMATION
  Report Type: Spontaneous
  Country: US (occurrence: US)
  Receive Date: 20160509
  Receipt Date: 20170322
  Transmission Date: 20170428
  Serious: No
  Sender: FDA-Public Use
  Company Number: US-PFIZER INC-2016070957

PATIENT
  Age: 62 Year
  Sex: Male

DRUGS (12)
  1. EMCYT [Suspect]
     Active Substance: ESTRAMUSTINE PHOSPHATE SODIUM
     Dosage: 280 MG, CYCLIC (2 CAPS PO DAILY ON DAYS 1-5 X 6 WEEKS THEN 2 (TWO) WEEKS OFF)
  2. OXYCODONE [Concomitant]
     Active Substance: OXYCODONE
     Dosage: 5 MG, 2X/DAY
     Dates: start: 201602
  3. DEXAMETHASONE. [Concomitant]
     Active Substance: DEXAMETHASONE
     Dosage: 4 MG, CYCLIC, FOR 3 DAYS DURING CHEMO TREATMENT
     Dates: start: 201601
  4. CLONIDINE. [Concomitant]
     Active Substance: CLONIDINE
     Dosage: 0.2 MG, 1X/DAY
     Dates: start: 2010
  5. EMCYT [Suspect]
     Active Substance: ESTRAMUSTINE PHOSPHATE SODIUM
     Indication: PROSTATE CANCER
     Dosage: 280 MG, CYCLIC (2 CAPSULES, TID X 7 DAYS ON WEEKS 2,4 AND 6)
     Route: 048
     Dates: start: 201601
  6. EMCYT [Suspect]
     Active Substance: ESTRAMUSTINE PHOSPHATE SODIUM
     Dosage: 280 MG, CYCLIC (2 CAP (140 MG ORAL CAPSULE) PO TID X 7 DAYS ON WEEK 2, 4 AND 6; ON EMPTY STOMACH)
     Route: 048
     Dates: start: 20160818
  7. METOPROLOL ER [Concomitant]
     Active Substance: METOPROLOL SUCCINATE
     Dosage: 50 MG, 1X/DAY
     Dates: start: 2010
  8. LISINOPRIL. [Concomitant]
     Active Substance: LISINOPRIL
     Dosage: 10 MG, 1X/DAY
     Dates: start: 2013
  9. LORATADINE. [Concomitant]
     Active Substance: LORATADINE
     Dosage: 10 MG, UNK
     Dates: start: 2010
  10. DEXATROL [Suspect]
     Active Substance: DEXAMETHASONE\NEOMYCIN SULFATE\POLYMYXIN B SULFATE
     Dosage: UNK
  11. WARFARIN [Concomitant]
     Active Substance: WARFARIN
     Dosage: 500 MG, 1X/DAY
     Dates: start: 201601
  12. HYDROCORTISONE. [Concomitant]
     Active Substance: HYDROCORTISONE
     Dosage: 20 MG, CYCLIC, 1 IN MORNING HALF AT NIGHT)

REACTIONS (8)
  - Chills [Unknown]
  - Headache [Not Recovered/Not Resolved]
  - Ageusia [Not Recovered/Not Resolved]
  - Hyperhidrosis [Not Recovered/Not Resolved]
  - Chest pain [Unknown]
  - Asthenia [Unknown]
  - Chest discomfort [Not Recovered/Not Resolved]
  - Vision blurred [Not Recovered/Not Resolved]
